FAERS Safety Report 4363876-2 (Version None)
Quarter: 2004Q2

REPORT INFORMATION
  Report Type: 
  Country: None (occurrence: None)
  Receive Date: 20040519
  Receipt Date: 20040507
  Transmission Date: 20050107
  Serious: Yes (Hospitalization)
  Sender: FDA-Public Use
  Company Number: 2004AP02568

PATIENT
  Age: 79 Year
  Sex: Female

DRUGS (8)
  1. LOSEC [Suspect]
  2. BETALOC [Suspect]
     Dosage: J
  3. PREDNISONE [Suspect]
  4. ARAVA [Suspect]
     Indication: RHEUMATOID ARTHRITIS
     Dates: start: 20030802, end: 20030824
  5. TENOXICAM [Suspect]
  6. ISOSORBIDE DINITRATE [Suspect]
  7. DURIDE [Suspect]
  8. THYROXINE SODIUM [Suspect]

REACTIONS (4)
  - DIARRHOEA [None]
  - HYPERPYREXIA [None]
  - HYPERTENSION [None]
  - LOSS OF CONSCIOUSNESS [None]
